FAERS Safety Report 4728923-4 (Version None)
Quarter: 2005Q3

REPORT INFORMATION
  Report Type: 
  Country: None (occurrence: None)
  Receive Date: 20050729
  Receipt Date: 20041101
  Transmission Date: 20060218
  Serious: No
  Sender: FDA-Public Use
  Company Number: US-GLAXOSMITHKLINE-A0532026A

PATIENT
  Age: 69 Year
  Sex: Male
  Weight: 63.6 kg

DRUGS (3)
  1. IMITREX [Suspect]
     Indication: MIGRAINE
     Dosage: 100MG AS REQUIRED
     Route: 048
  2. TAMBOCOR [Concomitant]
     Dosage: 50MG TWICE PER DAY
  3. TOPROL-XL [Concomitant]

REACTIONS (3)
  - CONFUSIONAL STATE [None]
  - MEMORY IMPAIRMENT [None]
  - VISUAL DISTURBANCE [None]
